FAERS Safety Report 4772164-1 (Version None)
Quarter: 2005Q3

REPORT INFORMATION
  Report Type: 
  Country: None (occurrence: None)
  Receive Date: 20050919
  Receipt Date: 20040915
  Transmission Date: 20060218
  Serious: No
  Sender: FDA-Public Use
  Company Number: US-BRISTOL-MYERS SQUIBB COMPANY-12704177

PATIENT
  Sex: Female

DRUGS (1)
  1. DEFINITY [Suspect]
     Dosage: DILUTED BOLUS (DILUTED WITH 18.5 SALINE)
     Route: 040
     Dates: start: 20040915

REACTIONS (1)
  - PAIN [None]
